FAERS Safety Report 9303437 (Version 2)
Quarter: 2014Q1

REPORT INFORMATION
  Report Type: Report from Study
  Country: CN (occurrence: CN)
  Receive Date: 20130522
  Receipt Date: 20140226
  Transmission Date: 20141002
  Serious: Yes (Other)
  Sender: FDA-Public Use
  Company Number: CN-ELI_LILLY_AND_COMPANY-CN201304006174

PATIENT
  Age: 68 Year
  Sex: Female

DRUGS (1)
  1. TERIPARATIDE [Suspect]
     Indication: OSTEOPOROSIS
     Dosage: 20UG, QD
     Dates: start: 20130317

REACTIONS (4)
  - Abasia [Unknown]
  - Dizziness [Unknown]
  - Mobility decreased [Unknown]
  - Pain in extremity [Recovered/Resolved]
